FAERS Safety Report 6014785-4 (Version None)
Quarter: 2008Q4

REPORT INFORMATION
  Report Type: 
  Country: None (occurrence: None)
  Receive Date: 20081219
  Receipt Date: 20081212
  Transmission Date: 20090506
  Serious: Yes (Other)
  Sender: FDA-Public Use
  Company Number: PHHY2008DE18490

PATIENT
  Sex: Male

DRUGS (3)
  1. ZOMETA [Suspect]
     Indication: METASTASES TO BONE
     Dosage: 4 MG
     Route: 042
     Dates: start: 20060201, end: 20080101
  2. ZOMETA [Suspect]
     Indication: PROSTATE CANCER
  3. DURAGESIC-100 [Concomitant]
     Dosage: 25 MG DAILY
     Route: 062
     Dates: start: 20060201, end: 20080301

REACTIONS (1)
  - OSTEONECROSIS [None]
